FAERS Safety Report 23922960 (Version 1)
Quarter: 2024Q2

REPORT INFORMATION
  Report Type: Spontaneous
  Country: CN (occurrence: CN)
  Receive Date: 20240531
  Receipt Date: 20240531
  Transmission Date: 20240716
  Serious: Yes (Hospitalization)
  Sender: FDA-Public Use
  Company Number: CN-NOVAST LABORATORIES INC.-2024NOV000245

PATIENT

DRUGS (7)
  1. METFORMIN [Suspect]
     Active Substance: METFORMIN HYDROCHLORIDE
     Indication: Type 2 diabetes mellitus
     Dosage: 0.5 GRAM/0.5 DAY
     Route: 048
     Dates: start: 20240511, end: 20240512
  2. METFORMIN [Suspect]
     Active Substance: METFORMIN HYDROCHLORIDE
     Dosage: 1 GRAM/0.5 DAY
     Route: 048
     Dates: start: 20240513, end: 20240515
  3. METFORMIN [Suspect]
     Active Substance: METFORMIN HYDROCHLORIDE
     Dosage: 0.5 GRAM/0.5 DAY
     Route: 048
     Dates: start: 20240516
  4. INSULIN NOS [Concomitant]
     Active Substance: INSULIN NOS
     Indication: Type 2 diabetes mellitus
     Dosage: 5 IU/ 0.3 DAY
     Route: 058
     Dates: start: 20240508, end: 20240511
  5. INSULIN NOS [Concomitant]
     Active Substance: INSULIN NOS
     Dosage: 6 IU/ 1 DAY
     Route: 058
     Dates: start: 20240512, end: 20240512
  6. INSULIN GLARGINE [Concomitant]
     Active Substance: INSULIN GLARGINE
     Indication: Type 2 diabetes mellitus
     Dosage: 14 IU/ 1 DAY
     Route: 058
     Dates: start: 20240508, end: 20240513
  7. INSULIN GLARGINE [Concomitant]
     Active Substance: INSULIN GLARGINE
     Dosage: 24 IU/ 1 DAY
     Route: 058
     Dates: start: 20240514, end: 20240514

REACTIONS (7)
  - Gastrooesophageal reflux disease [Recovered/Resolved]
  - Musculoskeletal chest pain [Recovered/Resolved]
  - Dizziness [Recovered/Resolved]
  - Nausea [Recovered/Resolved]
  - Vomiting [Recovered/Resolved]
  - Diarrhoea [Recovered/Resolved]
  - Asthenia [Recovered/Resolved]

NARRATIVE: CASE EVENT DATE: 20240515
